FAERS Safety Report 8522523 (Version 4)
Quarter: 2012Q4

REPORT INFORMATION
  Report Type: 
  Country: US (occurrence: US)
  Receive Date: 20120419
  Receipt Date: 20121227
  Transmission Date: 20130627
  Serious: Yes (Other)
  Sender: FDA-Public Use
  Company Number: US-FRI-1000020614

PATIENT
  Age: 32 Year
  Sex: Female
  Weight: 69 kg

DRUGS (4)
  1. SAVELLA [Suspect]
     Indication: FIBROMYALGIA
     Dosage: 100 mg
     Route: 048
  2. PROZAC [Concomitant]
     Indication: DEPRESSION
     Dosage: 40 mg
     Route: 048
  3. VITAMIN B12 [Concomitant]
     Indication: GASTRIC BYPASS
  4. PRENATAL VITAMIN WITH FOLIC ACID [Concomitant]
     Indication: PREGNANCY
     Dosage: 1 pill
     Route: 048
     Dates: start: 201104

REACTIONS (2)
  - HELLP syndrome [Recovered/Resolved]
  - Exposure during pregnancy [Recovered/Resolved]
